FAERS Safety Report 16324489 (Version 1)
Quarter: 2019Q2

REPORT INFORMATION
  Report Type: Spontaneous
  Country: JP (occurrence: JP)
  Receive Date: 20190517
  Receipt Date: 20190517
  Transmission Date: 20190711
  Serious: No
  Sender: FDA-Public Use
  Company Number: JP-LUPIN PHARMACEUTICALS INC.-2018-05926

PATIENT
  Age: 9 Decade
  Sex: Female

DRUGS (5)
  1. RIVASTACH [Concomitant]
     Active Substance: RIVASTIGMINE
     Dosage: 9 MG, UNK
     Route: 065
  2. CEROCRAL [Suspect]
     Active Substance: IFENPRODIL
     Indication: PRODUCT USED FOR UNKNOWN INDICATION
     Dosage: UNK
     Route: 065
  3. QUETIAPINE TABLETS [Suspect]
     Active Substance: QUETIAPINE
     Indication: DEMENTIA WITH LEWY BODIES
     Dosage: 12.5 MG, QD (AFTER DINNER)
     Route: 048
     Dates: start: 201801
  4. MEMARY [Suspect]
     Active Substance: MEMANTINE HYDROCHLORIDE
     Indication: DEMENTIA WITH LEWY BODIES
     Dosage: 5 MG, QD (AFTER THE BREAKFAST)
     Route: 048
     Dates: start: 201802
  5. RIVASTACH [Concomitant]
     Active Substance: RIVASTIGMINE
     Indication: DEMENTIA WITH LEWY BODIES
     Dosage: 4.5 MG, UNK
     Route: 065

REACTIONS (1)
  - Drug eruption [Recovering/Resolving]
